FAERS Safety Report 20577382 (Version 1)
Quarter: 2022Q1

REPORT INFORMATION
  Report Type: Spontaneous
  Country: US (occurrence: None)
  Receive Date: 20220310
  Receipt Date: 20220310
  Transmission Date: 20220423
  Serious: Yes (Hospitalization)
  Sender: FDA-Public Use
  Company Number: None

PATIENT
  Age: 25 Year
  Sex: Female
  Weight: 64.7 kg

DRUGS (8)
  1. CYCLOPHOSPHAMIDE [Suspect]
     Active Substance: CYCLOPHOSPHAMIDE
     Dates: end: 20220121
  2. CYTARABINE [Suspect]
     Active Substance: CYTARABINE
     Dates: end: 20220121
  3. DEXAMETHASONE [Suspect]
     Active Substance: DEXAMETHASONE
     Dates: end: 20220214
  4. MERCAPTOPURINE [Suspect]
     Active Substance: MERCAPTOPURINE
     Dates: end: 20220204
  5. METHOTREXATE [Suspect]
     Active Substance: METHOTREXATE
     Dates: end: 20220304
  6. ONCASPAR [Suspect]
     Active Substance: PEGASPARGASE
     Dates: end: 20220225
  7. RITUXIMAB [Suspect]
     Active Substance: RITUXIMAB
     Dates: end: 20220218
  8. VINCRISTINE SULFATE [Suspect]
     Active Substance: VINCRISTINE SULFATE
     Dates: end: 20220304

REACTIONS (12)
  - Epistaxis [None]
  - Petechiae [None]
  - Pancytopenia [None]
  - Lung opacity [None]
  - COVID-19 pneumonia [None]
  - Haemoglobin decreased [None]
  - Tachycardia [None]
  - Mental status changes [None]
  - Pulmonary fibrosis [None]
  - Hypotonia [None]
  - Febrile neutropenia [None]
  - Infection [None]

NARRATIVE: CASE EVENT DATE: 20220305
